FAERS Safety Report 17595371 (Version 1)
Quarter: 2020Q1

REPORT INFORMATION
  Report Type: Spontaneous
  Country: US (occurrence: US)
  Receive Date: 20200329
  Receipt Date: 20200329
  Transmission Date: 20200409
  Serious: No
  Sender: FDA-Public Use
  Company Number: US-ASTRAZENECA-2020SE36277

PATIENT
  Sex: Female

DRUGS (1)
  1. BYDUREON BCISE [Suspect]
     Active Substance: EXENATIDE
     Indication: CEREBROVASCULAR ACCIDENT
     Route: 058
     Dates: start: 20200125

REACTIONS (2)
  - Incorrect dose administered by device [Unknown]
  - Injection site haemorrhage [Unknown]
